FAERS Safety Report 10230729 (Version 1)
Quarter: 2014Q2

REPORT INFORMATION
  Report Type: Spontaneous
  Country: US (occurrence: None)
  Receive Date: 20140610
  Receipt Date: 20140610
  Transmission Date: 20141212
  Serious: Yes (Disabling)
  Sender: FDA-Public Use
  Company Number: None

PATIENT
  Age: 61 Year
  Sex: Female
  Weight: 98.43 kg

DRUGS (2)
  1. PROCRIT [Suspect]
     Indication: ANAEMIA
     Dosage: GIVEN INTO/UNDER THE SKIN
     Dates: start: 20140527
  2. PROCRIT [Suspect]
     Dosage: GIVEN INTO/UNDER THE SKIN
     Dates: start: 20140527

REACTIONS (3)
  - Abdominal pain upper [None]
  - Diarrhoea [None]
  - Weight decreased [None]
